FAERS Safety Report 16824408 (Version 4)
Quarter: 2019Q3

REPORT INFORMATION
  Report Type: Report from Study
  Country: JP (occurrence: JP)
  Receive Date: 20190918
  Receipt Date: 20190924
  Transmission Date: 20191005
  Serious: Yes (Hospitalization)
  Sender: FDA-Public Use
  Company Number: JP-EISAI MEDICAL RESEARCH-EC-2019-062298

PATIENT
  Age: 46 Year
  Sex: Male
  Weight: 77 kg

DRUGS (6)
  1. LIXIANA OD [Concomitant]
     Active Substance: EDOXABAN TOSYLATE
  2. TAKECAB [Concomitant]
     Active Substance: VONOPRAZAN FUMURATE
  3. VEMLIDY [Concomitant]
     Active Substance: TENOFOVIR ALAFENAMIDE FUMARATE
  4. LENVATINIB [Suspect]
     Active Substance: LENVATINIB
     Indication: HEPATOCELLULAR CARCINOMA
     Route: 048
     Dates: start: 20190827, end: 20190906
  5. AMINOLEBAN EN [Concomitant]
     Active Substance: UNSPECIFIED INGREDIENT
  6. CISPLATIN. [Suspect]
     Active Substance: CISPLATIN
     Indication: HEPATOCELLULAR CARCINOMA
     Dosage: UNKNOWN FREQUENCY
     Route: 065
     Dates: start: 20190827

REACTIONS (1)
  - Stevens-Johnson syndrome [Recovering/Resolving]

NARRATIVE: CASE EVENT DATE: 20190907
